FAERS Safety Report 4699135-8 (Version None)
Quarter: 2005Q2

REPORT INFORMATION
  Report Type: 
  Country: None (occurrence: None)
  Receive Date: 20050623
  Receipt Date: 20050623
  Transmission Date: 20051028
  Serious: Yes (Hospitalization)
  Sender: FDA-Public Use
  Company Number: None

PATIENT
  Age: 61 Year
  Sex: Female
  Weight: 74 kg

DRUGS (13)
  1. TRILEPRAL 300 MG [Suspect]
     Indication: NEUROPATHY
     Dosage: 300 MG BID ORAL
     Route: 048
     Dates: start: 20020601, end: 20050621
  2. EFFEXOR XR [Suspect]
     Indication: DEPRESSION
     Dosage: 150 MG QD ORAL
     Route: 048
     Dates: start: 20041201, end: 20050621
  3. ZIAC [Concomitant]
  4. AVAPRO [Concomitant]
  5. NORVASC [Concomitant]
  6. AMBIEN [Concomitant]
  7. SYNDTHROID [Concomitant]
  8. GLUCOPHAGE [Concomitant]
  9. RANITIDINE [Concomitant]
  10. OCUVITE [Concomitant]
  11. VITIAMIN E [Concomitant]
  12. ASPIRIN [Concomitant]
  13. NASACORT AQ [Concomitant]

REACTIONS (1)
  - HYPONATRAEMIA [None]
